FAERS Safety Report 22340029 (Version 1)
Quarter: 2023Q2

REPORT INFORMATION
  Report Type: Report from Study
  Country: US (occurrence: US)
  Receive Date: 20230518
  Receipt Date: 20230518
  Transmission Date: 20230721
  Serious: Yes (Hospitalization, Other)
  Sender: FDA-Public Use
  Company Number: US-JAZZ-2021-US-016868

PATIENT
  Age: 40 Year
  Sex: Female

DRUGS (118)
  1. XYREM [Suspect]
     Active Substance: SODIUM OXYBATE
     Indication: Narcolepsy
     Dosage: 2.25 GRAM, BID
     Route: 048
     Dates: start: 201703, end: 201703
  2. XYREM [Suspect]
     Active Substance: SODIUM OXYBATE
     Indication: Cataplexy
     Dosage: DOSE ADJUSTMENT
     Route: 048
     Dates: start: 201703, end: 202004
  3. XYREM [Suspect]
     Active Substance: SODIUM OXYBATE
     Dosage: 3 GRAM, BID
     Route: 048
     Dates: start: 202004
  4. BIFIDOBACTERIUM ANIMALIS LACTIS [Concomitant]
     Active Substance: BIFIDOBACTERIUM ANIMALIS LACTIS
     Indication: Product used for unknown indication
     Dosage: UNK
     Dates: start: 20150306
  5. DICYCLOMINE [Concomitant]
     Active Substance: DICYCLOMINE HYDROCHLORIDE
     Indication: Product used for unknown indication
     Dosage: UNK
     Dates: start: 20150901
  6. REGLAN [Concomitant]
     Active Substance: METOCLOPRAMIDE HYDROCHLORIDE
     Indication: Product used for unknown indication
     Dosage: UNK
     Dates: start: 20150301
  7. LEXAPRO [Concomitant]
     Active Substance: ESCITALOPRAM OXALATE
     Indication: Product used for unknown indication
     Dosage: UNK
     Dates: start: 20140301
  8. ZOFRAN [Concomitant]
     Active Substance: ONDANSETRON HYDROCHLORIDE
     Indication: Product used for unknown indication
     Dosage: UNK
     Dates: start: 20140301
  9. TRAMADOL HCL [Concomitant]
     Active Substance: TRAMADOL HYDROCHLORIDE
     Indication: Product used for unknown indication
     Dosage: UNK
     Dates: start: 20140301
  10. LYRICA [Concomitant]
     Active Substance: PREGABALIN
     Indication: Product used for unknown indication
     Dosage: UNK
     Dates: start: 20140301
  11. BOTOX COSMETIC [Concomitant]
     Active Substance: ONABOTULINUMTOXINA
     Indication: Product used for unknown indication
     Dosage: 100 UNIT VIAL
     Dates: start: 20140301
  12. VITAMIN D3 [Concomitant]
     Active Substance: CHOLECALCIFEROL
     Indication: Product used for unknown indication
     Dosage: 1000 UNIT SOFTGEL
     Dates: start: 20180601
  13. AZELASTINE [Concomitant]
     Active Substance: AZELASTINE
     Indication: Product used for unknown indication
     Dosage: UNK
     Dates: start: 20180501
  14. CYANOCOBALAMIN [Concomitant]
     Active Substance: CYANOCOBALAMIN
     Indication: Product used for unknown indication
     Dosage: UNK
     Dates: start: 20180601
  15. DEPAKOTE [Concomitant]
     Active Substance: DIVALPROEX SODIUM
     Indication: Product used for unknown indication
     Dosage: UNK
     Dates: start: 20201201
  16. ZYRTEC [Concomitant]
     Active Substance: CETIRIZINE HYDROCHLORIDE
     Indication: Product used for unknown indication
     Dosage: UNK
  17. ZYRTEC [Concomitant]
     Active Substance: CETIRIZINE HYDROCHLORIDE
     Dosage: UNK
  18. ARMODAFINIL [Concomitant]
     Active Substance: ARMODAFINIL
     Indication: Product used for unknown indication
     Dosage: UNK
  19. ARMODAFINIL [Concomitant]
     Active Substance: ARMODAFINIL
     Dosage: UNK
  20. SODIUM CHLORIDE [Concomitant]
     Active Substance: SODIUM CHLORIDE
     Indication: Product used for unknown indication
     Dosage: 7 % NEBULIZATION SOLUTION
  21. SODIUM CHLORIDE [Concomitant]
     Active Substance: SODIUM CHLORIDE
     Dosage: 7 % NEBULIZATION SOLUTION
  22. AZITHROMYCIN [Concomitant]
     Active Substance: AZITHROMYCIN
     Indication: Product used for unknown indication
     Dosage: UNK
  23. AZITHROMYCIN [Concomitant]
     Active Substance: AZITHROMYCIN
     Dosage: UNK
  24. VENTOLIN HFA [Concomitant]
     Active Substance: ALBUTEROL SULFATE
     Dosage: UNK
  25. VENTOLIN HFA [Concomitant]
     Active Substance: ALBUTEROL SULFATE
     Dosage: UNK
  26. EPIPEN [Concomitant]
     Active Substance: EPINEPHRINE
     Indication: Product used for unknown indication
     Dosage: 0.3 MG/0.3 ML SOLUTION, AUTO-INJECTOR
  27. EPIPEN [Concomitant]
     Active Substance: EPINEPHRINE
     Dosage: 0.3 MG/0.3 ML SOLUTION, AUTO-INJECTOR
  28. DUPIXENT [Concomitant]
     Active Substance: DUPILUMAB
     Indication: Product used for unknown indication
     Dosage: 300 MG/2 ML SOLUTION PREFILLED SYRINGE
  29. DUPIXENT [Concomitant]
     Active Substance: DUPILUMAB
     Dosage: 300 MG/2 ML SOLUTION PREFILLED SYRINGE
  30. FLUCONAZOLE [Concomitant]
     Active Substance: FLUCONAZOLE
     Indication: Product used for unknown indication
     Dosage: 200-0.9 MG/100 ML SOLUTION
  31. FLUCONAZOLE [Concomitant]
     Active Substance: FLUCONAZOLE
     Dosage: 200-0.9 MG/100 ML SOLUTION
  32. NURTEC ODT [Concomitant]
     Active Substance: RIMEGEPANT SULFATE
     Indication: Product used for unknown indication
     Dosage: UNK
  33. NURTEC ODT [Concomitant]
     Active Substance: RIMEGEPANT SULFATE
     Dosage: UNK
  34. BETHANECHOL CHLORIDE [Concomitant]
     Active Substance: BETHANECHOL CHLORIDE
     Indication: Product used for unknown indication
     Dosage: UNK
  35. BETHANECHOL CHLORIDE [Concomitant]
     Active Substance: BETHANECHOL CHLORIDE
     Dosage: UNK
  36. ESCITALOPRAM OXALATE [Concomitant]
     Active Substance: ESCITALOPRAM OXALATE
     Indication: Product used for unknown indication
     Dosage: UNK
  37. ESCITALOPRAM OXALATE [Concomitant]
     Active Substance: ESCITALOPRAM OXALATE
     Dosage: UNK
  38. LACTINEX [LACTOBACILLUS ACIDOPHILUS] [Concomitant]
     Indication: Product used for unknown indication
     Dosage: UNK
  39. LACTINEX [LACTOBACILLUS ACIDOPHILUS] [Concomitant]
     Dosage: UNK
  40. FLUDROCORTISONE ACETATE [Concomitant]
     Active Substance: FLUDROCORTISONE ACETATE
     Indication: Product used for unknown indication
     Dosage: UNK
  41. FLUDROCORTISONE ACETATE [Concomitant]
     Active Substance: FLUDROCORTISONE ACETATE
     Dosage: UNK
  42. HYDROXOCOBALAMIN [Concomitant]
     Active Substance: HYDROXOCOBALAMIN
     Indication: Product used for unknown indication
     Dosage: UNK
  43. HYDROXOCOBALAMIN [Concomitant]
     Active Substance: HYDROXOCOBALAMIN
     Dosage: UNK
  44. HYDROXYCHLOROQUINE [Concomitant]
     Active Substance: HYDROXYCHLOROQUINE
     Indication: Product used for unknown indication
     Dosage: UNK
  45. HYDROXYCHLOROQUINE [Concomitant]
     Active Substance: HYDROXYCHLOROQUINE
     Dosage: UNK
  46. HYDROCHLOROTHIAZIDE\METOPROLOL [Concomitant]
     Active Substance: HYDROCHLOROTHIAZIDE\METOPROLOL
     Indication: Product used for unknown indication
     Dosage: UNK
  47. HYDROCHLOROTHIAZIDE\METOPROLOL [Concomitant]
     Active Substance: HYDROCHLOROTHIAZIDE\METOPROLOL
     Dosage: UNK
  48. MYRBETRIQ [Concomitant]
     Active Substance: MIRABEGRON
     Indication: Product used for unknown indication
     Dosage: UNK
  49. MYRBETRIQ [Concomitant]
     Active Substance: MIRABEGRON
     Dosage: UNK
  50. MIRTAZAPINE [Concomitant]
     Active Substance: MIRTAZAPINE
     Indication: Product used for unknown indication
     Dosage: UNK
  51. MIRTAZAPINE [Concomitant]
     Active Substance: MIRTAZAPINE
     Dosage: UNK
  52. PANTOPRAZOLE SODIUM [Concomitant]
     Active Substance: PANTOPRAZOLE SODIUM
     Indication: Product used for unknown indication
     Dosage: UNK
  53. PANTOPRAZOLE SODIUM [Concomitant]
     Active Substance: PANTOPRAZOLE SODIUM
     Dosage: UNK
  54. MAXALT [Concomitant]
     Active Substance: RIZATRIPTAN BENZOATE
     Indication: Product used for unknown indication
     Dosage: UNK
  55. MAXALT [Concomitant]
     Active Substance: RIZATRIPTAN BENZOATE
     Dosage: UNK
  56. ULTRAM [Concomitant]
     Active Substance: TRAMADOL HYDROCHLORIDE
     Indication: Product used for unknown indication
     Dosage: UNK
  57. ULTRAM [Concomitant]
     Active Substance: TRAMADOL HYDROCHLORIDE
     Dosage: UNK
  58. MIDODRINE HYDROCHLORIDE [Concomitant]
     Active Substance: MIDODRINE HYDROCHLORIDE
     Indication: Product used for unknown indication
     Dosage: UNK
  59. MIDODRINE HYDROCHLORIDE [Concomitant]
     Active Substance: MIDODRINE HYDROCHLORIDE
     Dosage: UNK
  60. TOPIRAMATE [Concomitant]
     Active Substance: TOPIRAMATE
     Indication: Product used for unknown indication
     Dosage: UNK
  61. TOPIRAMATE [Concomitant]
     Active Substance: TOPIRAMATE
     Dosage: UNK
  62. SUMATRIPTAN [Concomitant]
     Active Substance: SUMATRIPTAN
     Indication: Product used for unknown indication
     Dosage: UNK
     Route: 048
  63. SUMATRIPTAN [Concomitant]
     Active Substance: SUMATRIPTAN
     Dosage: UNK
     Route: 048
  64. AIMOVIG [Concomitant]
     Active Substance: ERENUMAB-AOOE
     Indication: Product used for unknown indication
     Dosage: UNK
  65. AIMOVIG [Concomitant]
     Active Substance: ERENUMAB-AOOE
     Dosage: UNK
  66. RISEDRONATE SODIUM [Concomitant]
     Active Substance: RISEDRONATE SODIUM
     Indication: Product used for unknown indication
     Dosage: UNK
  67. RISEDRONATE SODIUM [Concomitant]
     Active Substance: RISEDRONATE SODIUM
     Dosage: UNK
  68. PHENERGAN [Concomitant]
     Active Substance: PROMETHAZINE HYDROCHLORIDE
     Indication: Product used for unknown indication
     Dosage: UNK
  69. PHENERGAN [Concomitant]
     Active Substance: PROMETHAZINE HYDROCHLORIDE
     Dosage: UNK
  70. LINZESS [Concomitant]
     Active Substance: LINACLOTIDE
     Indication: Product used for unknown indication
     Dosage: UNK
  71. LINZESS [Concomitant]
     Active Substance: LINACLOTIDE
     Dosage: UNK
  72. HYDROXYZINE HYDROCHLORIDE [Concomitant]
     Active Substance: HYDROXYZINE HYDROCHLORIDE
     Indication: Product used for unknown indication
     Dosage: UNK
  73. HYDROXYZINE HYDROCHLORIDE [Concomitant]
     Active Substance: HYDROXYZINE HYDROCHLORIDE
     Dosage: UNK
  74. TERCONAZOLE [Concomitant]
     Active Substance: TERCONAZOLE
     Indication: Product used for unknown indication
     Dosage: UNK
  75. TERCONAZOLE [Concomitant]
     Active Substance: TERCONAZOLE
     Dosage: UNK
  76. CARIMUNE [Concomitant]
     Active Substance: HUMAN IMMUNOGLOBULIN G
     Indication: Product used for unknown indication
     Dosage: UNK
  77. CARIMUNE [Concomitant]
     Active Substance: HUMAN IMMUNOGLOBULIN G
     Dosage: UNK
  78. PROLIA [Concomitant]
     Active Substance: DENOSUMAB
     Indication: Product used for unknown indication
     Dosage: UNK
  79. PROLIA [Concomitant]
     Active Substance: DENOSUMAB
     Dosage: UNK
  80. HYDROCORTISONE ACETATE [Concomitant]
     Active Substance: HYDROCORTISONE ACETATE
     Indication: Product used for unknown indication
     Dosage: UNK
  81. HYDROCORTISONE ACETATE [Concomitant]
     Active Substance: HYDROCORTISONE ACETATE
     Dosage: UNK
  82. ZONISAMIDE [Concomitant]
     Active Substance: ZONISAMIDE
     Indication: Product used for unknown indication
     Dosage: UNK
  83. ZONISAMIDE [Concomitant]
     Active Substance: ZONISAMIDE
     Dosage: UNK
  84. ACTONEL [Concomitant]
     Active Substance: RISEDRONATE SODIUM
     Indication: Product used for unknown indication
     Dosage: UNK
  85. ACTONEL [Concomitant]
     Active Substance: RISEDRONATE SODIUM
     Dosage: UNK
  86. ASPIRIN [Concomitant]
     Active Substance: ASPIRIN
     Indication: Product used for unknown indication
     Dosage: UNK
  87. ASPIRIN [Concomitant]
     Active Substance: ASPIRIN
     Dosage: UNK
  88. ONDANSETRON [Concomitant]
     Active Substance: ONDANSETRON
     Indication: Product used for unknown indication
     Dosage: UNK
  89. ONDANSETRON [Concomitant]
     Active Substance: ONDANSETRON
     Dosage: UNK
  90. SODIUM FLUORIDE [Concomitant]
     Active Substance: SODIUM FLUORIDE
     Indication: Product used for unknown indication
     Dosage: 5000 PPM 1.1 % PASTE DENTAL
  91. SODIUM FLUORIDE [Concomitant]
     Active Substance: SODIUM FLUORIDE
     Dosage: 5000 PPM 1.1 % PASTE DENTAL
  92. TIZANIDINE HYDROCHLORIDE [Concomitant]
     Active Substance: TIZANIDINE HYDROCHLORIDE
     Indication: Product used for unknown indication
     Dosage: UNK
  93. TIZANIDINE HYDROCHLORIDE [Concomitant]
     Active Substance: TIZANIDINE HYDROCHLORIDE
     Dosage: UNK
  94. EVENITY [Concomitant]
     Active Substance: ROMOSOZUMAB-AQQG
     Indication: Product used for unknown indication
     Dosage: 105 MG/1.17 ML SOLUTION
  95. EVENITY [Concomitant]
     Active Substance: ROMOSOZUMAB-AQQG
     Dosage: 105 MG/1.17 ML SOLUTION
  96. ACETAMINOPHEN\HYDROCODONE [Concomitant]
     Active Substance: ACETAMINOPHEN\HYDROCODONE
     Indication: Product used for unknown indication
     Dosage: UNK
  97. ACETAMINOPHEN\HYDROCODONE [Concomitant]
     Active Substance: ACETAMINOPHEN\HYDROCODONE
     Dosage: UNK
  98. RIZATRIPTAN BENZOATE [Concomitant]
     Active Substance: RIZATRIPTAN BENZOATE
     Indication: Product used for unknown indication
     Dosage: UNK
  99. RIZATRIPTAN BENZOATE [Concomitant]
     Active Substance: RIZATRIPTAN BENZOATE
     Dosage: UNK
  100. CALCITRIOL [Concomitant]
     Active Substance: CALCITRIOL
     Indication: Product used for unknown indication
     Dosage: UNK
  101. CALCITRIOL [Concomitant]
     Active Substance: CALCITRIOL
     Dosage: UNK
  102. CYCLOBENZAPRINE HYDROCHLORIDE [Concomitant]
     Active Substance: CYCLOBENZAPRINE HYDROCHLORIDE
     Indication: Product used for unknown indication
     Dosage: UNK
     Route: 048
  103. CYCLOBENZAPRINE HYDROCHLORIDE [Concomitant]
     Active Substance: CYCLOBENZAPRINE HYDROCHLORIDE
     Dosage: UNK
     Route: 048
  104. MONTELUKAST SODIUM [Concomitant]
     Active Substance: MONTELUKAST SODIUM
     Indication: Product used for unknown indication
     Dosage: UNK
  105. MONTELUKAST SODIUM [Concomitant]
     Active Substance: MONTELUKAST SODIUM
     Dosage: UNK
  106. TRELEGY ELLIPTA [Concomitant]
     Active Substance: FLUTICASONE FUROATE\UMECLIDINIUM BROMIDE\VILANTEROL TRIFENATATE
     Indication: Product used for unknown indication
     Dosage: 200-62.5-5 MCG/ACT AEROSOL POWCER BREATH ACTIVATED INHALE 1 PUFF INTO THE LUNGES EVERY DAY
  107. TRELEGY ELLIPTA [Concomitant]
     Active Substance: FLUTICASONE FUROATE\UMECLIDINIUM BROMIDE\VILANTEROL TRIFENATATE
     Dosage: 200-62.5-5 MCG/ACT AEROSOL POWCER BREATH ACTIVATED INHALE 1 PUFF INTO THE LUNGES EVERY DAY
  108. ALBUTEROL\IPRATROPIUM [Concomitant]
     Active Substance: ALBUTEROL\IPRATROPIUM
     Indication: Product used for unknown indication
     Dosage: 0.5-2.5 MG/3 ML SOLUTION
  109. ALBUTEROL\IPRATROPIUM [Concomitant]
     Active Substance: ALBUTEROL\IPRATROPIUM
     Dosage: 0.5-2.5 MG/3 ML SOLUTION
  110. KETOCONAZOLE [Concomitant]
     Active Substance: KETOCONAZOLE
     Indication: Product used for unknown indication
     Dosage: UNK
  111. KETOCONAZOLE [Concomitant]
     Active Substance: KETOCONAZOLE
     Dosage: UNK
  112. PREDNISONE [Concomitant]
     Active Substance: PREDNISONE
     Indication: Product used for unknown indication
     Dosage: UNK
  113. BUDESONIDE [Concomitant]
     Active Substance: BUDESONIDE
     Indication: Product used for unknown indication
     Dosage: 0.5 MG/2 ML SUSPENSION
  114. ALBUTEROL SULFATE [Concomitant]
     Active Substance: ALBUTEROL SULFATE
     Indication: Product used for unknown indication
     Dosage: NEBULIZATION SOLUTION
  115. SPIRIVA [Concomitant]
     Active Substance: TIOTROPIUM BROMIDE MONOHYDRATE
     Indication: Product used for unknown indication
     Dosage: 1.25 MCG/ACT AEROSOL SOLUTION
  116. WIXELA INHUB [Concomitant]
     Active Substance: FLUTICASONE PROPIONATE\SALMETEROL XINAFOATE
     Indication: Product used for unknown indication
     Dosage: 500-50 MCG/ACT AEROSOL POWDER BREATH ACTOVATED INHALE
  117. DOXYCYCLINE HYCLATE [Concomitant]
     Active Substance: DOXYCYCLINE HYCLATE
     Indication: Product used for unknown indication
     Dosage: 100 MILLIGRAM, QD
     Route: 048
  118. LACTATED RINGERS SOLUTION [Concomitant]
     Active Substance: CALCIUM CHLORIDE\POTASSIUM CHLORIDE\SODIUM CHLORIDE\SODIUM LACTATE
     Indication: Product used for unknown indication
     Dosage: UNK
     Route: 042

REACTIONS (12)
  - Pneumonia [Unknown]
  - Upper airway obstruction [Unknown]
  - Asthma [Unknown]
  - Illness [Unknown]
  - Pyrexia [Unknown]
  - Upper respiratory tract infection [Unknown]
  - Heart rate irregular [Unknown]
  - Dyspnoea exertional [Unknown]
  - Infection [Unknown]
  - Influenza [Unknown]
  - Sinusitis [Unknown]
  - Dyspnoea [Unknown]

NARRATIVE: CASE EVENT DATE: 20230201
